FAERS Safety Report 11142730 (Version 1)
Quarter: 2015Q2

REPORT INFORMATION
  Report Type: Spontaneous
  Country: BR (occurrence: BR)
  Receive Date: 20150527
  Receipt Date: 20150527
  Transmission Date: 20150821
  Serious: Yes (Other)
  Sender: FDA-Public Use
  Company Number: PHHY2015BR063766

PATIENT
  Age: 9 Year
  Sex: Male
  Weight: 23.5 kg

DRUGS (7)
  1. TOBRAMYCIN. [Suspect]
     Active Substance: TOBRAMYCIN
     Indication: PSEUDOMONAS INFECTION
     Dosage: 300 MG, BID (28 DAYS EVERY ALTERNATE MONTH)
     Route: 055
  2. COLISTIMETHATE [Suspect]
     Active Substance: COLISTIMETHATE SODIUM
     Indication: PSEUDOMONAS INFECTION
     Dosage: UNK
     Route: 055
     Dates: start: 2012
  3. DORNASE ALFA [Concomitant]
     Active Substance: DORNASE ALFA
     Indication: PRODUCT USED FOR UNKNOWN INDICATION
     Route: 065
  4. SALBUTAMOL [Concomitant]
     Active Substance: ALBUTEROL
     Indication: PRODUCT USED FOR UNKNOWN INDICATION
  5. CIPROFLOXACIN. [Suspect]
     Active Substance: CIPROFLOXACIN
     Indication: PSEUDOMONAS INFECTION
     Route: 048
  6. AZITHROMYCIN [Suspect]
     Active Substance: AZITHROMYCIN ANHYDROUS
     Indication: PSEUDOMONAS INFECTION
     Dosage: 250 MG, TIW
     Route: 065
  7. ZOTEON PODHALER [Suspect]
     Active Substance: TOBRAMYCIN
     Indication: PRODUCT USED FOR UNKNOWN INDICATION
     Dosage: 112 MG, BID (ON AND OFF)
     Route: 055
     Dates: start: 201407

REACTIONS (6)
  - Condition aggravated [Recovering/Resolving]
  - Glucose tolerance impaired [Unknown]
  - Rhinitis allergic [Unknown]
  - Pseudomonas infection [Recovering/Resolving]
  - Hyperglycaemia [Unknown]
  - Faecal elastase concentration decreased [Unknown]

NARRATIVE: CASE EVENT DATE: 2012
